FAERS Safety Report 6880291-8 (Version None)
Quarter: 2010Q3

REPORT INFORMATION
  Report Type: 
  Country: None (occurrence: None)
  Receive Date: 20100728
  Receipt Date: 20100720
  Transmission Date: 20110219
  Serious: Yes (Other)
  Sender: FDA-Public Use
  Company Number: JP-SANOFI-AVENTIS-2010SA042342

PATIENT
  Age: 45 Year
  Sex: Female
  Weight: 80 kg

DRUGS (4)
  1. APIDRA [Suspect]
     Route: 058
     Dates: start: 20100701
  2. LANTUS [Concomitant]
     Dosage: DOSAGE UNKNOWN
     Route: 058
  3. INSULIN [Concomitant]
     Dates: end: 20100630
  4. DIGITALIS TAB [Concomitant]

REACTIONS (2)
  - CHEST DISCOMFORT [None]
  - ELECTROCARDIOGRAM QT PROLONGED [None]
